FAERS Safety Report 22202442 (Version 3)
Quarter: 2023Q2

REPORT INFORMATION
  Report Type: Spontaneous
  Country: US (occurrence: US)
  Receive Date: 20230412
  Receipt Date: 20230426
  Transmission Date: 20230721
  Serious: No
  Sender: FDA-Public Use
  Company Number: US-PFIZER INC-202300148907

PATIENT
  Age: 71 Year
  Sex: Female
  Weight: 104.33 kg

DRUGS (12)
  1. NURTEC ODT [Suspect]
     Active Substance: RIMEGEPANT SULFATE
     Indication: Migraine
     Dosage: UNK
     Dates: start: 20230311
  2. NURTEC ODT [Suspect]
     Active Substance: RIMEGEPANT SULFATE
     Dosage: 75 MG, ALTERNATE DAY (MELT THE PILL ON THE TONGUE)
     Route: 048
     Dates: start: 20230327
  3. OZEMPIC [Concomitant]
     Active Substance: SEMAGLUTIDE
     Indication: Diabetes mellitus
     Dosage: 2 MG, WEEKLY (2MG INJECTION ONCE A WEEK)
  4. SIMVASTATIN [Concomitant]
     Active Substance: SIMVASTATIN
     Indication: Blood cholesterol
     Dosage: 20 MG, 1X/DAY (AT NIGHTTIME BY MOUTH)
     Route: 048
  5. PANTOPRAZOLE [Concomitant]
     Active Substance: PANTOPRAZOLE
     Indication: Gastrooesophageal reflux disease
     Dosage: 40 MG (N THE MORNING BY MOUTH)
     Route: 048
  6. CITALOPRAM [Concomitant]
     Active Substance: CITALOPRAM HYDROBROMIDE
     Indication: Anxiety
     Dosage: 20 MG (N THE MORNING BY MOUTH)
     Route: 048
  7. FUROSEMIDE [Concomitant]
     Active Substance: FUROSEMIDE
     Dosage: 40 MG (N THE MORNING BY MOUTH)
     Route: 048
  8. LOSARTAN POTASSIUM [Concomitant]
     Active Substance: LOSARTAN POTASSIUM
     Indication: Hypertension
     Dosage: 25 MG, 1X/DAY (IN THE MORNING ONCE BY MOUTH)
     Route: 048
  9. MINERALS\VITAMINS [Concomitant]
     Active Substance: MINERALS\VITAMINS
     Indication: Macular degeneration
     Dosage: UNK, 2X/DAY (ONE IN MORNING AT NIGHT)
     Route: 048
  10. ALLERGY RELIEF [LORATADINE] [Concomitant]
     Indication: Hypersensitivity
     Dosage: 10 MG (10MG OF LORATADINE IN IT TABLET IN THE MORNING BY MOUTH)
     Route: 048
  11. VIACTIV CALCIUM PLUS VITAMIN D + K [Concomitant]
     Dosage: 1 DF, 2X/DAY (ONE IN THE MORNING AND ONE AT NIGHT)
     Route: 048
  12. LUMIFY [Concomitant]
     Active Substance: BRIMONIDINE TARTRATE
     Indication: Dry eye
     Dosage: UNK, 1X/DAY (IN THE MORNING, ONE IN EACH EYE)

REACTIONS (7)
  - Migraine [Recovered/Resolved]
  - Headache [Unknown]
  - Somnolence [Unknown]
  - Sedation [Unknown]
  - Fatigue [Unknown]
  - Memory impairment [Unknown]
  - Sensitivity to weather change [Unknown]

NARRATIVE: CASE EVENT DATE: 20230328
